FAERS Safety Report 16437196 (Version 1)
Quarter: 2019Q2

REPORT INFORMATION
  Report Type: Spontaneous
  Country: JP (occurrence: JP)
  Receive Date: 20190615
  Receipt Date: 20190615
  Transmission Date: 20190711
  Serious: Yes (Death, Other)
  Sender: FDA-Public Use
  Company Number: JP-AUROBINDO-AUR-APL-2019-033153

PATIENT

DRUGS (4)
  1. PRALATREXATE INJECTION [Suspect]
     Active Substance: PRALATREXATE
     Dosage: 20 MILLIGRAM/SQ. METER, DAILY
     Route: 042
  2. FOLIC ACID. [Concomitant]
     Active Substance: FOLIC ACID
     Indication: CUTANEOUS T-CELL LYMPHOMA
  3. VITAMIN B12 [Concomitant]
     Active Substance: CYANOCOBALAMIN
     Indication: CUTANEOUS T-CELL LYMPHOMA
  4. PRALATREXATE INJECTION [Suspect]
     Active Substance: PRALATREXATE
     Indication: CUTANEOUS T-CELL LYMPHOMA
     Dosage: 30 MILLIGRAM/SQ. METER, DAILY FOR 3 MIN
     Route: 042

REACTIONS (8)
  - Mucosal disorder [Recovering/Resolving]
  - Platelet count decreased [Unknown]
  - Diarrhoea [Unknown]
  - Rash [Unknown]
  - Fall [Unknown]
  - Blastic plasmacytoid dendritic cell neoplasia [Unknown]
  - Stomatitis [Unknown]
  - Traumatic intracranial haemorrhage [Fatal]
